FAERS Safety Report 4879524-9 (Version None)
Quarter: 2006Q1

REPORT INFORMATION
  Report Type: 
  Country: None (occurrence: None)
  Receive Date: 20060111
  Receipt Date: 20051130
  Transmission Date: 20060701
  Serious: Yes (Life-Threatening, Hospitalization, Other)
  Sender: FDA-Public Use
  Company Number: 2006-CZ-00115

PATIENT
  Age: 8 Year
  Sex: Male

DRUGS (2)
  1. PREDNISOLONE TAB [Suspect]
     Dosage: 1.5 MG/KG
  2. COLCHICINE [Concomitant]

REACTIONS (8)
  - ARTHRALGIA [None]
  - HAEMATOCRIT DECREASED [None]
  - ILEAL PERFORATION [None]
  - ILEUS [None]
  - INFLAMMATION [None]
  - MUSCULAR WEAKNESS [None]
  - PLATELET COUNT INCREASED [None]
  - POSTOPERATIVE FEVER [None]
